FAERS Safety Report 20708928 (Version 2)
Quarter: 2022Q2

REPORT INFORMATION
  Report Type: Spontaneous
  Country: PA (occurrence: PA)
  Receive Date: 20220414
  Receipt Date: 20220524
  Transmission Date: 20220721
  Serious: No
  Sender: FDA-Public Use
  Company Number: PA-ORGANON-O2203PAN002700

PATIENT
  Age: 25 Year
  Sex: Female

DRUGS (1)
  1. ETONOGESTREL [Suspect]
     Active Substance: ETONOGESTREL
     Indication: Product used for unknown indication
     Dosage: 1 IMPLANT

REACTIONS (2)
  - Device issue [Not Recovered/Not Resolved]
  - Complication associated with device [Recovered/Resolved]
